FAERS Safety Report 6341598-6 (Version None)
Quarter: 2009Q3

REPORT INFORMATION
  Report Type: 
  Country: None (occurrence: None)
  Receive Date: 20090902
  Receipt Date: 20090902
  Transmission Date: 20100115
  Serious: Yes (Other)
  Sender: FDA-Public Use
  Company Number: None

PATIENT
  Age: 68 Year
  Sex: Female

DRUGS (12)
  1. CIPROFLAXACIN [Suspect]
     Indication: URINARY TRACT INFECTION
     Dosage: 250 MG BD ORAL USE
     Route: 048
     Dates: start: 20090401, end: 20090407
  2. ASPIRIN [Concomitant]
  3. ATENOLOL [Concomitant]
  4. LEVOTHYROXINE [Concomitant]
  5. METHYLOPA [Concomitant]
  6. CO-CODAMOL [Concomitant]
  7. MIXTARD HUMAN 70/30 [Concomitant]
  8. ENALAPRIL MALEATE [Concomitant]
  9. LOSARTAN [Concomitant]
  10. BENDROFLUZIDE [Concomitant]
  11. ATORVASTATIN [Concomitant]
  12. LATANOPROST [Concomitant]

REACTIONS (3)
  - CARDIAC FAILURE ACUTE [None]
  - DYSKINESIA [None]
  - MUSCLE SPASMS [None]
